FAERS Safety Report 5043261-0 (Version None)
Quarter: 2006Q3

REPORT INFORMATION
  Report Type: 
  Country: None (occurrence: None)
  Receive Date: 20060703
  Receipt Date: 20060703
  Transmission Date: 20061208
  Serious: Yes (Hospitalization)
  Sender: FDA-Public Use
  Company Number: None

PATIENT
  Sex: Female
  Weight: 85.7298 kg

DRUGS (1)
  1. METHYLPRES 4 MG VINTAGE [Suspect]
     Indication: DRUG HYPERSENSITIVITY
     Dosage: 4 MG DEC. DAILY 6-1 PO
     Route: 048
     Dates: start: 20060621, end: 20060626

REACTIONS (10)
  - BLOOD POTASSIUM DECREASED [None]
  - FATIGUE [None]
  - HAEMORRHOIDAL HAEMORRHAGE [None]
  - HEADACHE [None]
  - INSOMNIA [None]
  - MUSCLE TWITCHING [None]
  - PAIN IN EXTREMITY [None]
  - RECTAL HAEMORRHAGE [None]
  - THROMBOSIS [None]
  - WOUND HAEMORRHAGE [None]
